FAERS Safety Report 8910987 (Version 2)
Quarter: 2012Q4

REPORT INFORMATION
  Report Type: Report from Study
  Country: US (occurrence: US)
  Receive Date: 20121115
  Receipt Date: 20121121
  Transmission Date: 20130627
  Serious: Yes (Other)
  Sender: FDA-Public Use
  Company Number: US-US-EMD SERONO, INC.-7173211

PATIENT
  Age: 23 None
  Sex: Male

DRUGS (2)
  1. REBIF [Suspect]
     Indication: MULTIPLE SCLEROSIS
     Route: 058
     Dates: start: 20041108
  2. ADVIL [Concomitant]
     Indication: PREMEDICATION

REACTIONS (6)
  - Optic neuritis [Recovering/Resolving]
  - Multiple sclerosis [Unknown]
  - Injection site erythema [Not Recovered/Not Resolved]
  - Injection site induration [Not Recovered/Not Resolved]
  - Injection site mass [Not Recovered/Not Resolved]
  - Influenza like illness [Not Recovered/Not Resolved]
